FAERS Safety Report 13920888 (Version 1)
Quarter: 2017Q3

REPORT INFORMATION
  Report Type: Spontaneous
  Country: US (occurrence: US)
  Receive Date: 20170830
  Receipt Date: 20170830
  Transmission Date: 20171127
  Serious: Yes (Other)
  Sender: FDA-Public Use
  Company Number: US-SHIRE-US201719392

PATIENT
  Sex: Male

DRUGS (5)
  1. HUMIRA [Suspect]
     Active Substance: ADALIMUMAB
     Dosage: 40 MG, 1X/2WKS
     Route: 058
     Dates: start: 20161209
  2. LIALDA [Suspect]
     Active Substance: MESALAMINE
     Indication: PRODUCT USED FOR UNKNOWN INDICATION
     Route: 065
  3. HUMIRA [Suspect]
     Active Substance: ADALIMUMAB
     Indication: COLITIS ULCERATIVE
     Dosage: 160 MG, 1X/DAY:QD
     Route: 058
     Dates: start: 20161118, end: 20161118
  4. MERCAPTOPURINE. [Concomitant]
     Active Substance: MERCAPTOPURINE
     Indication: PRODUCT USED FOR UNKNOWN INDICATION
  5. HUMIRA [Suspect]
     Active Substance: ADALIMUMAB
     Dosage: 80 MG, UNK
     Route: 058
     Dates: start: 20161125, end: 20161125

REACTIONS (19)
  - Diarrhoea haemorrhagic [Unknown]
  - Depressed mood [Unknown]
  - Influenza [Unknown]
  - Colitis ulcerative [Unknown]
  - Constipation [Unknown]
  - Visual impairment [Not Recovered/Not Resolved]
  - Abdominal pain [Unknown]
  - Weight decreased [Not Recovered/Not Resolved]
  - Loss of personal independence in daily activities [Unknown]
  - Decreased appetite [Unknown]
  - Injection site pain [Unknown]
  - Rectal haemorrhage [Unknown]
  - Pyrexia [Unknown]
  - Headache [Unknown]
  - Insomnia [Unknown]
  - Anxiety [Unknown]
  - Nasopharyngitis [Unknown]
  - Malaise [Unknown]
  - Nausea [Unknown]

NARRATIVE: CASE EVENT DATE: 2016
